FAERS Safety Report 22288604 (Version 3)
Quarter: 2023Q4

REPORT INFORMATION
  Report Type: Other
  Country: US (occurrence: US)
  Receive Date: 20230505
  Receipt Date: 20231213
  Transmission Date: 20240109
  Serious: Yes (Other)
  Sender: FDA-Public Use
  Company Number: US-GLENMARK PHARMACEUTICALS-2023GMK081476

PATIENT

DRUGS (1)
  1. OMEPRAZOLE [Suspect]
     Active Substance: OMEPRAZOLE
     Indication: Gastric pH decreased
     Dosage: UNK
     Route: 065
     Dates: start: 20230120, end: 2023

REACTIONS (5)
  - Suicidal ideation [Unknown]
  - Lethargy [Unknown]
  - Anxiety [Unknown]
  - Depression [Recovered/Resolved]
  - Product quality issue [Unknown]

NARRATIVE: CASE EVENT DATE: 20230202
